FAERS Safety Report 6166161-1 (Version None)
Quarter: 2009Q2

REPORT INFORMATION
  Report Type: 
  Country: None (occurrence: None)
  Receive Date: 20090424
  Receipt Date: 20090421
  Transmission Date: 20091009
  Serious: Yes (Death, Other)
  Sender: FDA-Public Use
  Company Number: GB-WYE-G00651207

PATIENT
  Sex: Female
  Weight: 106.7 kg

DRUGS (23)
  1. RAPAMUNE [Suspect]
     Dosage: UNKNOWN ONE DOSE EVERY DAY
     Route: 048
     Dates: start: 20031101, end: 20070720
  2. ALFACALCIDOL [Concomitant]
     Route: 048
     Dates: start: 20070327, end: 20070601
  3. ALFACALCIDOL [Concomitant]
     Route: 048
     Dates: start: 20070616, end: 20070726
  4. ALLOPURINOL [Concomitant]
     Route: 048
     Dates: start: 20070720, end: 20070720
  5. AUGMENTIN '125' [Concomitant]
     Route: 048
     Dates: start: 20060613, end: 20070726
  6. CHLORPHENIRAMINE MALEATE [Concomitant]
     Route: 048
     Dates: start: 20061017, end: 20070720
  7. DIHYDROCODEINE BITARTRATE INJ [Concomitant]
     Route: 048
     Dates: start: 20070601, end: 20070619
  8. ENOXAPARIN SODIUM [Concomitant]
     Dosage: 20MG FREQUENCY UNKNOWN
     Route: 058
     Dates: start: 20070217, end: 20070227
  9. FENTANYL [Concomitant]
     Dosage: 50MCG, FREQUENCY UNKNOWN
     Route: 048
     Dates: start: 20070601, end: 20070619
  10. CODEINE PHOSPHATE/PARACETAMOL [Concomitant]
     Route: 048
     Dates: start: 20060407, end: 20070601
  11. LACTULOSE [Concomitant]
     Dosage: 10ML FREQUENCY UNKNOWN
     Route: 048
     Dates: start: 20070217, end: 20070601
  12. LISINOPRIL [Concomitant]
     Route: 048
     Dates: start: 20070123, end: 20070601
  13. NEFOPAM HYDROCHLORIDE [Concomitant]
     Route: 048
     Dates: start: 20060328, end: 20070720
  14. NYSTATIN [Concomitant]
     Route: 048
     Dates: start: 20070702, end: 20070720
  15. SEVELAMER [Concomitant]
     Route: 048
     Dates: start: 20070601, end: 20070720
  16. SODIUM BICARBONATE [Concomitant]
     Route: 048
     Dates: start: 20070521, end: 20070720
  17. SPIRONOLACTONE [Concomitant]
     Route: 048
     Dates: start: 20070601, end: 20070702
  18. WARFARIN SODIUM [Concomitant]
     Route: 048
     Dates: start: 20070227, end: 20070522
  19. PREDNISOLONE [Concomitant]
     Route: 048
     Dates: start: 20070720, end: 20070726
  20. MIMPARA [Interacting]
     Indication: HYPERPARATHYROIDISM SECONDARY
     Route: 048
     Dates: start: 20061212, end: 20070122
  21. MIMPARA [Interacting]
     Route: 048
     Dates: start: 20070123, end: 20070206
  22. MIMPARA [Interacting]
     Dates: start: 20070521, end: 20070618
  23. MIMPARA [Interacting]
     Route: 048
     Dates: start: 20070619

REACTIONS (5)
  - CALCIPHYLAXIS [None]
  - CARDIAC FAILURE [None]
  - DRUG INTERACTION [None]
  - MYOCARDIAL ISCHAEMIA [None]
  - PROTEINURIA [None]
